FAERS Safety Report 23693285 (Version 4)
Quarter: 2025Q4

REPORT INFORMATION
  Report Type: Report from Study
  Country: CA (occurrence: CA)
  Receive Date: 20240401
  Receipt Date: 20251128
  Transmission Date: 20260117
  Serious: Yes (Other)
  Sender: TAKEDA
  Company Number: CA-TAKEDA-2023TUS118945

PATIENT
  Age: 46 Year
  Sex: Female
  Weight: 62.132 kg

DRUGS (6)
  1. VEDOLIZUMAB [Suspect]
     Active Substance: VEDOLIZUMAB
     Indication: Crohn^s disease
     Dosage: 300 MILLIGRAM
  2. VEDOLIZUMAB [Suspect]
     Active Substance: VEDOLIZUMAB
     Indication: Crohn^s disease
     Dosage: 108 MILLIGRAM, Q2WEEKS
     Dates: start: 20230823
  3. COLESTID [Concomitant]
     Active Substance: COLESTIPOL HYDROCHLORIDE
     Indication: Bile acid malabsorption
     Dosage: UNK
  4. COLESTID [Concomitant]
     Active Substance: COLESTIPOL HYDROCHLORIDE
     Indication: Diarrhoea
  5. COLESEVELAM HYDROCHLORIDE [Concomitant]
     Active Substance: COLESEVELAM HYDROCHLORIDE
     Indication: Crohn^s disease
     Dosage: UNK
  6. COLESEVELAM [Concomitant]
     Active Substance: COLESEVELAM
     Indication: Bile acid malabsorption
     Dosage: UNK

REACTIONS (10)
  - Crohn^s disease [Unknown]
  - Injection site urticaria [Unknown]
  - Diarrhoea [Unknown]
  - Frequent bowel movements [Unknown]
  - Faeces soft [Unknown]
  - Bile acid malabsorption [Unknown]
  - Social problem [Unknown]
  - Impaired work ability [Unknown]
  - Abdominal pain [Recovering/Resolving]
  - Arthralgia [Unknown]

NARRATIVE: CASE EVENT DATE: 20231213
